FAERS Safety Report 7320539-9 (Version None)
Quarter: 2011Q1

REPORT INFORMATION
  Report Type: 
  Country: None (occurrence: None)
  Receive Date: 20110223
  Receipt Date: 20110223
  Transmission Date: 20110831
  Serious: Yes (Other)
  Sender: FDA-Public Use
  Company Number: None

PATIENT
  Age: 71 Year
  Sex: Female
  Weight: 74.8435 kg

DRUGS (1)
  1. ZOMETA [Suspect]
     Indication: BONE NEOPLASM MALIGNANT
     Dosage: USUAL ONCE A MONTH IV
     Route: 042
     Dates: start: 20101215, end: 20110115

REACTIONS (11)
  - INSOMNIA [None]
  - ERYTHEMA [None]
  - VOMITING [None]
  - POISONING [None]
  - NAUSEA [None]
  - ULCER [None]
  - APHAGIA [None]
  - PAIN IN EXTREMITY [None]
  - DIZZINESS [None]
  - FAECAL INCONTINENCE [None]
  - RASH [None]
